FAERS Safety Report 11652497 (Version 3)
Quarter: 2015Q4

REPORT INFORMATION
  Report Type: Spontaneous
  Country: BR (occurrence: BR)
  Receive Date: 20151022
  Receipt Date: 20151027
  Transmission Date: 20160304
  Serious: Yes (Hospitalization, Other)
  Sender: FDA-Public Use
  Company Number: BR-BAXTER-2015BAX056701

PATIENT
  Age: 43 Year
  Sex: Female
  Weight: 75.8 kg

DRUGS (7)
  1. PACLITAXEL. [Suspect]
     Active Substance: PACLITAXEL
     Indication: CHEMOTHERAPY
     Dosage: 4 CYCLES
     Route: 065
     Dates: start: 20100414, end: 20100617
  2. TAMOXIFEN [Suspect]
     Active Substance: TAMOXIFEN
     Indication: CANCER HORMONAL THERAPY
     Route: 065
     Dates: start: 201007, end: 201406
  3. DOCETAXEL. [Suspect]
     Active Substance: DOCETAXEL
     Indication: CHEMOTHERAPY
     Dosage: CYCLIC
     Route: 065
     Dates: start: 20150910
  4. GENUXAL [Suspect]
     Active Substance: CYCLOPHOSPHAMIDE
     Indication: CHEMOTHERAPY
     Dosage: 4 CYCLES
     Route: 065
     Dates: start: 20100201, end: 20100317
  5. GENUXAL [Suspect]
     Active Substance: CYCLOPHOSPHAMIDE
     Dosage: ALSO REPORTED AS 1080 MG, CYCLIC
     Route: 065
     Dates: start: 20150910
  6. DOXORUBICIN [Suspect]
     Active Substance: DOXORUBICIN
     Indication: CHEMOTHERAPY
     Dosage: 4 CYCLES
     Route: 065
     Dates: start: 20100201, end: 20100317
  7. ARIMIDEX [Suspect]
     Active Substance: ANASTROZOLE
     Indication: PRODUCT USED FOR UNKNOWN INDICATION
     Route: 065
     Dates: start: 20140807, end: 201508

REACTIONS (9)
  - Leiomyoma [Unknown]
  - Torsade de pointes [Recovered/Resolved]
  - Hypomagnesaemia [Unknown]
  - Cardio-respiratory arrest [Unknown]
  - Spinal pain [Unknown]
  - Lymphadenopathy [Unknown]
  - Vertebral lesion [Unknown]
  - Device related infection [Unknown]
  - Hepatic steatosis [Unknown]

NARRATIVE: CASE EVENT DATE: 20120903
